FAERS Safety Report 23970693 (Version 1)
Quarter: 2024Q2

REPORT INFORMATION
  Report Type: Spontaneous
  Country: FR (occurrence: FR)
  Receive Date: 20240613
  Receipt Date: 20240613
  Transmission Date: 20240715
  Serious: Yes (Other)
  Sender: FDA-Public Use
  Company Number: None

PATIENT
  Age: 17 Year
  Sex: Male

DRUGS (1)
  1. TRAMADOL [Suspect]
     Active Substance: TRAMADOL\TRAMADOL HYDROCHLORIDE
     Indication: Incorrect dose administered
     Dosage: TIME INTERVAL: TOTAL: 6 LP FORM OVER 1 HOUR, TRAMADOL HYDROCHLORIDE
     Route: 048
     Dates: start: 20240406

REACTIONS (6)
  - Dysuria [Recovering/Resolving]
  - Incorrect dose administered [Recovered/Resolved]
  - Pruritus [Recovering/Resolving]
  - Nightmare [Recovering/Resolving]
  - Vertigo [Recovering/Resolving]
  - Hallucination [Recovering/Resolving]

NARRATIVE: CASE EVENT DATE: 20240407
